FAERS Safety Report 8480826-8 (Version None)
Quarter: 2012Q2

REPORT INFORMATION
  Report Type: 
  Country: None (occurrence: None)
  Receive Date: 20120626
  Receipt Date: 20120626
  Transmission Date: 20120825
  Serious: Yes (Other)
  Sender: FDA-Public Use
  Company Number: None

PATIENT
  Sex: Female

DRUGS (7)
  1. THYMODIL [Concomitant]
  2. PROVIGIL [Suspect]
     Indication: INSOMNIA
     Dosage: 400MG ONCE A DAY PO
     Route: 048
  3. TOPRAL [Concomitant]
  4. CELEXA [Concomitant]
  5. NUVIGIL [Suspect]
     Indication: INSOMNIA
     Dosage: 250MG ONCE A DAY PO
     Route: 048
  6. ASPIRIN [Concomitant]
  7. CINTHROID [Concomitant]

REACTIONS (4)
  - SCAR [None]
  - FEELING JITTERY [None]
  - RASH MACULO-PAPULAR [None]
  - BURNING SENSATION [None]
